FAERS Safety Report 20510543 (Version 2)
Quarter: 2024Q1

REPORT INFORMATION
  Report Type: Spontaneous
  Country: US (occurrence: US)
  Receive Date: 20220224
  Receipt Date: 20240123
  Transmission Date: 20240410
  Serious: Yes (Other)
  Sender: FDA-Public Use
  Company Number: US-JNJFOC-20220240184

PATIENT
  Age: 5 Decade
  Sex: Female

DRUGS (1)
  1. ELMIRON [Suspect]
     Active Substance: PENTOSAN POLYSULFATE SODIUM
     Indication: Cystitis interstitial
     Route: 048
     Dates: start: 2002, end: 2010

REACTIONS (3)
  - Neovascular age-related macular degeneration [Unknown]
  - Choroidal neovascularisation [Unknown]
  - Maculopathy [Unknown]

NARRATIVE: CASE EVENT DATE: 20120101
